FAERS Safety Report 16382104 (Version 1)
Quarter: 2019Q2

REPORT INFORMATION
  Report Type: Report from Study
  Country: None (occurrence: GT)
  Receive Date: 20190603
  Receipt Date: 20190603
  Transmission Date: 20190711
  Serious: Yes (Other)
  Sender: FDA-Public Use
  Company Number: GT-ABBVIE-19S-069-2803744-00

PATIENT
  Age: 38 Year
  Sex: Male

DRUGS (5)
  1. ZEMPLAR [Suspect]
     Active Substance: PARICALCITOL
     Indication: HYPERPARATHYROIDISM SECONDARY
     Route: 042
     Dates: start: 20160802
  2. FOLIC ACID. [Concomitant]
     Active Substance: FOLIC ACID
     Indication: PRODUCT USED FOR UNKNOWN INDICATION
     Route: 048
  3. ALFACALCIDOL [Concomitant]
     Active Substance: ALFACALCIDOL
     Indication: VITAMIN SUPPLEMENTATION
     Route: 048
  4. COMPLEX B [Concomitant]
     Active Substance: CALCIUM PANTOTHENATE\CYANOCOBALAMIN\NIACINAMIDE\PYRIDOXINE HYDROCHLORIDE\RIBOFLAVIN\THIAMINE MONONITRATE
     Indication: VITAMIN SUPPLEMENTATION
     Dosage: AMPOULE
  5. ERYTHROPOYETINE [Concomitant]
     Indication: RED BLOOD CELL COUNT ABNORMAL
     Dosage: AMPOULE

REACTIONS (2)
  - Spinal column injury [Recovering/Resolving]
  - Blood parathyroid hormone decreased [Recovering/Resolving]

NARRATIVE: CASE EVENT DATE: 201901
